FAERS Safety Report 8481484-9 (Version None)
Quarter: 2012Q2

REPORT INFORMATION
  Report Type: 
  Country: None (occurrence: None)
  Receive Date: 20120625
  Receipt Date: 20120611
  Transmission Date: 20120825
  Serious: Yes (Hospitalization)
  Sender: FDA-Public Use
  Company Number: 7139155

PATIENT
  Age: 56 Year
  Sex: Female

DRUGS (1)
  1. LEVOTHYROXINE SODIUM [Suspect]
     Indication: THYROIDECTOMY
     Dosage: 150 MCG (150 MCG, 1 IN 1 D) ORAL
     Route: 048

REACTIONS (6)
  - FATIGUE [None]
  - LOSS OF CONSCIOUSNESS [None]
  - PRESYNCOPE [None]
  - PALPITATIONS [None]
  - WEIGHT DECREASED [None]
  - MALAISE [None]
